FAERS Safety Report 7715354-8 (Version None)
Quarter: 2011Q3

REPORT INFORMATION
  Report Type: 
  Country: None (occurrence: None)
  Receive Date: 20110810
  Receipt Date: 20110623
  Transmission Date: 20111222
  Serious: No
  Sender: FDA-Public Use
  Company Number: 1000021805

PATIENT
  Age: 42 Year
  Sex: Female

DRUGS (8)
  1. GABAPENTIN [Suspect]
     Indication: FIBROMYALGIA
     Dates: start: 20110616
  2. SAVELLA [Suspect]
     Indication: FIBROMYALGIA
     Dosage: SEE IMAGE ORAL
     Route: 048
     Dates: start: 20110619, end: 20110621
  3. SAVELLA [Suspect]
     Indication: FIBROMYALGIA
     Dosage: SEE IMAGE ORAL
     Route: 048
     Dates: start: 20110626
  4. SAVELLA [Suspect]
     Indication: FIBROMYALGIA
     Dosage: SEE IMAGE ORAL
     Route: 048
     Dates: start: 20110623, end: 20110623
  5. SAVELLA [Suspect]
     Indication: FIBROMYALGIA
     Dosage: SEE IMAGE ORAL
     Route: 048
     Dates: start: 20110624, end: 20110625
  6. SAVELLA [Suspect]
     Indication: FIBROMYALGIA
     Dosage: 12.5 MG (12.5 MG, 1 IN 1 D), ORAL, 25 MG (12.5 MG, 2 IN 1 D), ORAL
     Route: 048
     Dates: start: 20110617, end: 20110618
  7. SAVELLA [Suspect]
     Indication: FIBROMYALGIA
     Dosage: 12.5 MG (12.5 MG, 1 IN 1 D), ORAL, 25 MG (12.5 MG, 2 IN 1 D), ORAL
     Route: 048
     Dates: start: 20110616, end: 20110616
  8. ULTRAM (TRAMADOL HYDROCHLORIDE) (TRAMADOL HYDROCHLORIDE) [Concomitant]

REACTIONS (8)
  - HEADACHE [None]
  - FATIGUE [None]
  - DIARRHOEA [None]
  - JOINT STIFFNESS [None]
  - ABDOMINAL PAIN [None]
  - RETCHING [None]
  - ARTHRALGIA [None]
  - NAUSEA [None]
